FAERS Safety Report 5826227-X (Version None)
Quarter: 2008Q3

REPORT INFORMATION
  Report Type: 
  Country: None (occurrence: None)
  Receive Date: 20080729
  Receipt Date: 20080721
  Transmission Date: 20090109
  Serious: Yes (Hospitalization)
  Sender: FDA-Public Use
  Company Number: US-ABBOTT-08P-163-0464489-00

PATIENT
  Age: 38 Year
  Sex: Female

DRUGS (4)
  1. KALETRA [Suspect]
     Indication: HIV INFECTION
     Dosage: 2 DOSES
     Route: 048
     Dates: start: 20050707
  2. TMC 125 [Concomitant]
     Indication: HIV INFECTION
     Dosage: 2 DOSES
     Route: 048
     Dates: start: 20050707, end: 20080322
  3. ENFUVIRTIDE [Concomitant]
     Indication: HIV INFECTION
     Route: 042
     Dates: start: 20050707
  4. TENOFOVIR [Concomitant]
     Indication: HIV INFECTION
     Route: 048
     Dates: start: 20050707

REACTIONS (1)
  - INTRA-UTERINE DEATH [None]
